FAERS Safety Report 9815668 (Version 1)
Quarter: 2014Q1

REPORT INFORMATION
  Report Type: Spontaneous
  Country: GB (occurrence: None)
  Receive Date: 20140110
  Receipt Date: 20140110
  Transmission Date: 20141002
  Serious: Yes (Disabling)
  Sender: FDA-Public Use
  Company Number: FK201400061

PATIENT
  Age: 69 Year
  Sex: Female

DRUGS (2)
  1. LETROZOLE [Suspect]
     Indication: BREAST CANCER
     Dosage: 2.5 MG, 1 IN 1 D, ORAL
     Route: 048
     Dates: start: 20101116, end: 20131030
  2. TAMOXIFEN [Concomitant]

REACTIONS (5)
  - Axonal neuropathy [None]
  - Balance disorder [None]
  - Decreased vibratory sense [None]
  - Loss of proprioception [None]
  - Neuropathy peripheral [None]
